FAERS Safety Report 19855696 (Version 1)
Quarter: 2021Q3

REPORT INFORMATION
  Report Type: Spontaneous
  Country: US (occurrence: US)
  Receive Date: 20210920
  Receipt Date: 20210920
  Transmission Date: 20211014
  Serious: Yes (Other)
  Sender: FDA-Public Use
  Company Number: None

PATIENT
  Age: 77 Year
  Sex: Female

DRUGS (11)
  1. PROLIA [Suspect]
     Active Substance: DENOSUMAB
     Indication: OSTEOPOROSIS
     Dosage: ?          OTHER FREQUENCY:Q 6 MONTHS;?
     Route: 058
     Dates: start: 20210701, end: 20210702
  2. LEVOTHYROXINE 88MCG [Concomitant]
     Active Substance: LEVOTHYROXINE
  3. AMLODIPINE 2.5MG [Concomitant]
     Active Substance: AMLODIPINE BESYLATE
  4. ATORVASTATIN 40MG [Concomitant]
     Active Substance: ATORVASTATIN
  5. METOPROLOL TARTRATE 50MG [Concomitant]
     Active Substance: METOPROLOL TARTRATE
  6. NITROFURANTOIN MONO/MACRO 100MG [Concomitant]
     Dates: start: 20210709, end: 20210915
  7. METFORMIN [Concomitant]
     Active Substance: METFORMIN HYDROCHLORIDE
  8. LOSARTAN 100MG [Concomitant]
     Active Substance: LOSARTAN
  9. FUROSEMIDE 40MG [Concomitant]
     Active Substance: FUROSEMIDE
  10. LANTUS [Concomitant]
     Active Substance: INSULIN GLARGINE
  11. ELIQUIS [Concomitant]
     Active Substance: APIXABAN

REACTIONS (3)
  - Dysuria [None]
  - Pain [None]
  - Decreased appetite [None]

NARRATIVE: CASE EVENT DATE: 20210701
